FAERS Safety Report 25936037 (Version 2)
Quarter: 2025Q4

REPORT INFORMATION
  Report Type: Spontaneous
  Country: BR (occurrence: BR)
  Receive Date: 20251017
  Receipt Date: 20251107
  Transmission Date: 20260118
  Serious: Yes (Other)
  Sender: NOVARTIS
  Company Number: BR-002147023-NVSC2025BR159961

PATIENT
  Sex: Male

DRUGS (1)
  1. ILARIS [Suspect]
     Active Substance: CANAKINUMAB
     Indication: Product used for unknown indication
     Dosage: 150 MILLIGRAM PER MILLILITRE
     Route: 065
     Dates: start: 2016

REACTIONS (8)
  - Hyperpyrexia [Recovering/Resolving]
  - Product dose omission issue [Unknown]
  - Fatigue [Recovering/Resolving]
  - Abdominal pain [Recovering/Resolving]
  - Aggression [Recovering/Resolving]
  - Arthralgia [Recovering/Resolving]
  - Anxiety [Unknown]
  - Depression [Unknown]
